FAERS Safety Report 9176728 (Version 1)
Quarter: 2013Q1

REPORT INFORMATION
  Report Type: Spontaneous
  Country: US (occurrence: US)
  Receive Date: 20130321
  Receipt Date: 20130321
  Transmission Date: 20140127
  Serious: No
  Sender: FDA-Public Use
  Company Number: US-MYLANLABS-2013S1001936

PATIENT
  Age: 85 Year
  Sex: Male

DRUGS (1)
  1. AMLODIPINE BESYLATE TABLETS [Suspect]

REACTIONS (4)
  - Oedema peripheral [Not Recovered/Not Resolved]
  - Infection [Recovered/Resolved]
  - Necrosis [Not Recovered/Not Resolved]
  - Unevaluable event [Not Recovered/Not Resolved]
